FAERS Safety Report 13994814 (Version 1)
Quarter: 2017Q3

REPORT INFORMATION
  Report Type: Spontaneous
  Country: CA (occurrence: CA)
  Receive Date: 20170921
  Receipt Date: 20170921
  Transmission Date: 20171128
  Serious: Yes (Hospitalization)
  Sender: FDA-Public Use
  Company Number: CA-CIPLA LTD.-2017CA17126

PATIENT

DRUGS (3)
  1. OLANZAPINE. [Suspect]
     Active Substance: OLANZAPINE
     Indication: COGNITIVE DISORDER
     Dosage: 7.5 MG, PER DAY
     Route: 065
  2. OLANZAPINE. [Suspect]
     Active Substance: OLANZAPINE
     Indication: EXCESSIVE EXERCISE
  3. OLANZAPINE. [Suspect]
     Active Substance: OLANZAPINE
     Indication: UNDERWEIGHT
     Dosage: 2.5 MG, PER DAY
     Route: 065

REACTIONS (1)
  - Atrioventricular block first degree [Recovering/Resolving]
